FAERS Safety Report 10029232 (Version 1)
Quarter: 2014Q1

REPORT INFORMATION
  Report Type: Spontaneous
  Country: DE (occurrence: DE)
  Receive Date: 20140321
  Receipt Date: 20140321
  Transmission Date: 20141002
  Serious: Yes (Other)
  Sender: FDA-Public Use
  Company Number: PHHY2014DE032496

PATIENT
  Sex: 0

DRUGS (1)
  1. AFINITOR [Suspect]

REACTIONS (1)
  - Guillain-Barre syndrome [Unknown]
